FAERS Safety Report 8238851-8 (Version None)
Quarter: 2012Q1

REPORT INFORMATION
  Report Type: 
  Country: None (occurrence: None)
  Receive Date: 20120327
  Receipt Date: 20120319
  Transmission Date: 20120608
  Serious: Yes (Hospitalization, Other)
  Sender: FDA-Public Use
  Company Number: IS-CUBIST-2012S1000295

PATIENT
  Age: 62 Year
  Sex: Male

DRUGS (2)
  1. CUBICIN [Suspect]
     Indication: ENDOCARDITIS STAPHYLOCOCCAL
     Route: 042
     Dates: start: 20111208, end: 20111223
  2. ANTIBIOTICS [Concomitant]
     Indication: PRODUCT USED FOR UNKNOWN INDICATION
     Dosage: DOSE UNIT:U

REACTIONS (3)
  - PULMONARY EOSINOPHILIA [None]
  - ACUTE RESPIRATORY DISTRESS SYNDROME [None]
  - AORTIC VALVE INCOMPETENCE [None]
